FAERS Safety Report 5338414-8 (Version None)
Quarter: 2007Q2

REPORT INFORMATION
  Report Type: 
  Country: None (occurrence: None)
  Receive Date: 20070530
  Receipt Date: 20070519
  Transmission Date: 20071010
  Serious: Yes (Hospitalization)
  Sender: FDA-Public Use
  Company Number: US-ELI_LILLY_AND_COMPANY-US200705005804

PATIENT
  Age: 70 Year
  Sex: Male

DRUGS (3)
  1. BYETTA [Suspect]
     Dosage: 10 UNK, UNKNOWN
     Dates: start: 20061101
  2. DIOVAN /01319601/ [Concomitant]
     Indication: BLOOD PRESSURE
     Dosage: UNK, UNKNOWN
  3. VITAMIN CAP [Concomitant]
     Dosage: UNK, UNKNOWN

REACTIONS (3)
  - DIARRHOEA [None]
  - GASTROINTESTINAL DISORDER [None]
  - ILEOSTOMY [None]
